FAERS Safety Report 5483496-6 (Version None)
Quarter: 2007Q4

REPORT INFORMATION
  Report Type: 
  Country: None (occurrence: None)
  Receive Date: 20071012
  Receipt Date: 20070927
  Transmission Date: 20080405
  Serious: Yes (Hospitalization)
  Sender: FDA-Public Use
  Company Number: US-ELI_LILLY_AND_COMPANY-US200709002073

PATIENT
  Sex: Female
  Weight: 45.351 kg

DRUGS (11)
  1. FORTEO [Suspect]
     Indication: OSTEOPOROSIS
     Dosage: 20 UG, DAILY (1/D)
     Dates: start: 20070110
  2. FORTEO [Suspect]
     Dosage: 20 UG, DAILY (1/D)
     Dates: start: 20070619
  3. LEVOXYL [Concomitant]
     Dosage: 0.05 MG, QOD
  4. LEVOXYL [Concomitant]
     Dosage: 0.075 MG, QOD
  5. PROTONIX [Concomitant]
     Indication: OESOPHAGEAL STENOSIS
     Dosage: 40 MG, DAILY (1/D)
  6. FOSAMAX [Concomitant]
     Indication: OSTEOPOROSIS
  7. CENTRUM SILVER [Concomitant]
     Dosage: UNK, DAILY (1/D)
  8. PROMETRIUM [Concomitant]
  9. ASPIRIN [Concomitant]
  10. PREMARIN [Concomitant]
  11. CITRACAL [Concomitant]

REACTIONS (7)
  - ASTHENIA [None]
  - BLOOD CALCIUM INCREASED [None]
  - DIARRHOEA [None]
  - FLATULENCE [None]
  - HYPONATRAEMIA [None]
  - MALAISE [None]
  - VOLVULUS [None]
